FAERS Safety Report 15296137 (Version 1)
Quarter: 2018Q3

REPORT INFORMATION
  Report Type: Spontaneous
  Country: FR (occurrence: FR)
  Receive Date: 20180820
  Receipt Date: 20180820
  Transmission Date: 20181010
  Serious: Yes (Other)
  Sender: FDA-Public Use
  Company Number: FR-TEVA-2018-FR-945656

PATIENT
  Age: 4 Week
  Sex: Female

DRUGS (6)
  1. CISPLATIN. [Suspect]
     Active Substance: CISPLATIN
     Dosage: AT 15 WEEKS OF AGE; FIFTH CYCLE AT 1.9 MG/KG WITH A TOTAL DOSE OF 9.2 MG; ROUTE: {INFUSION};
     Route: 050
  2. CISPLATIN. [Suspect]
     Active Substance: CISPLATIN
     Indication: HEPATOBLASTOMA
     Dosage: ON DAY 16 OF BIRTH; FIRST CYCLE; 1.6 MG/KG WITH A TOTAL DOSE OF 5.3 MG; ROUTE: {INFUSION};
     Route: 050
  3. CISPLATIN. [Suspect]
     Active Substance: CISPLATIN
     Dosage: AT 8 WEEKS OF AGE; FOURTH CYCLE AT 2.0 MG/KG WITH A TOTAL DOSE OF 8.2 MG; ROUTE: {INFUSION};
     Route: 050
  4. CISPLATIN. [Suspect]
     Active Substance: CISPLATIN
     Dosage: AT THE AGE OF 17 WEEKS RECEIVED THE 6TH CYCLE OF CISPLATIN;
     Route: 065
  5. CISPLATIN. [Suspect]
     Active Substance: CISPLATIN
     Dosage: AT 4 WEEKS OF AGE; 2ND CYCLE AT 1.7 MG/KG WITH A TOTAL DOSE OF 5.8 MG; ROUTE: {INFUSION};
     Route: 050
  6. CISPLATIN. [Suspect]
     Active Substance: CISPLATIN
     Dosage: AT 6 WEEKS OF AGE; THIRD CYCLE AT 1.7 MG/KG WITH A TOTAL DOSE OF 6.3 MG; ROUTE: {INFUSION};
     Route: 050

REACTIONS (2)
  - Weight gain poor [Unknown]
  - Anaemia [Unknown]
